FAERS Safety Report 18382266 (Version 1)
Quarter: 2020Q4

REPORT INFORMATION
  Report Type: Spontaneous
  Country: US (occurrence: US)
  Receive Date: 20201013
  Receipt Date: 20201013
  Transmission Date: 20210114
  Serious: Yes (Hospitalization)
  Sender: FDA-Public Use
  Company Number: None

PATIENT
  Age: 67 Year
  Sex: Male
  Weight: 90.2 kg

DRUGS (1)
  1. CYTARABINE (63878) [Suspect]
     Active Substance: CYTARABINE

REACTIONS (2)
  - Febrile neutropenia [None]
  - Streptococcal bacteraemia [None]

NARRATIVE: CASE EVENT DATE: 20201004
